FAERS Safety Report 7948384-1 (Version None)
Quarter: 2011Q4

REPORT INFORMATION
  Report Type: 
  Country: None (occurrence: None)
  Receive Date: 20111130
  Receipt Date: 20111121
  Transmission Date: 20120403
  Serious: Yes (Hospitalization, Other)
  Sender: FDA-Public Use
  Company Number: US-CELGENEUS-163-20785-11080056

PATIENT
  Sex: Male

DRUGS (17)
  1. EFFEXOR [Concomitant]
     Dosage: 150 MILLIGRAM
     Route: 065
  2. LANTUS [Concomitant]
     Route: 065
  3. ACYCLOVIR [Concomitant]
     Dosage: 400 MILLIGRAM
     Route: 065
  4. SLOW NIACIN [Concomitant]
     Dosage: 500 MILLIGRAM
     Route: 065
  5. ASPIRIN [Concomitant]
     Dosage: 325 MILLIGRAM
     Route: 065
  6. SIMVASTATIN [Concomitant]
     Dosage: 20 MILLIGRAM
     Route: 065
  7. OXYCODONE HCL [Concomitant]
     Indication: PAIN
     Dosage: 15 MILLIGRAM
     Route: 065
  8. TRILIPIX [Concomitant]
     Dosage: 135 MILLIGRAM
     Route: 065
  9. VITAMIN D [Concomitant]
     Dosage: 21.25 MILLIGRAM
     Route: 065
  10. APIDRA [Concomitant]
     Dosage: 16 IU (INTERNATIONAL UNIT)
     Route: 065
  11. DECADRON [Concomitant]
     Dosage: 40 MILLIGRAM
     Route: 048
     Dates: start: 20110714, end: 20110815
  12. MORPHINE [Concomitant]
     Route: 065
  13. RIFAMPIN [Concomitant]
     Dosage: 300 MILLIGRAM
     Route: 065
  14. ZOMETA [Concomitant]
     Route: 065
  15. THALOMID [Suspect]
     Indication: MULTIPLE MYELOMA
     Dosage: 200 MILLIGRAM
     Route: 048
     Dates: start: 20110714, end: 20110815
  16. VELCADE [Concomitant]
     Dosage: 1.3 MILLIGRAM/SQ. METER
     Route: 041
     Dates: start: 20110714, end: 20110815
  17. METOPROLOL TARTRATE [Concomitant]
     Dosage: 75 MILLIGRAM
     Route: 065

REACTIONS (2)
  - STAPHYLOCOCCAL INFECTION [None]
  - ATELECTASIS [None]
